FAERS Safety Report 9035031 (Version 1)
Quarter: 2013Q1

REPORT INFORMATION
  Report Type: Report from Study
  Country: US (occurrence: US)
  Receive Date: 20130129
  Receipt Date: 20130129
  Transmission Date: 20140127
  Serious: No
  Sender: FDA-Public Use
  Company Number: US-ABBOTT-12P-163-0894918-00

PATIENT
  Sex: Female
  Weight: 67.19 kg

DRUGS (10)
  1. HUMIRA 40 MG/0.8 ML PEN [Suspect]
     Indication: RHEUMATOID ARTHRITIS
     Dates: start: 20111228, end: 20111228
  2. SYNTHROID [Concomitant]
     Indication: HYPOTHYROIDISM
  3. PAXIL [Concomitant]
     Indication: DEPRESSION
  4. DIOVAN [Concomitant]
     Indication: HYPERTENSION
  5. PROVIGIL [Concomitant]
     Indication: NARCOLEPSY
  6. BYSTOLIC [Concomitant]
     Indication: HYPERTENSION
  7. VOLTAREN [Concomitant]
     Indication: PAIN
  8. SYMBICORT [Concomitant]
     Indication: ASTHMA
  9. FENTANYL [Concomitant]
     Indication: PAIN
     Dosage: PATCH
     Route: 062
  10. NORCO [Concomitant]
     Indication: PAIN

REACTIONS (4)
  - Diarrhoea [Recovered/Resolved]
  - Vomiting [Recovered/Resolved]
  - Abdominal pain upper [Recovering/Resolving]
  - Nausea [Recovered/Resolved]
